FAERS Safety Report 5483514-5 (Version None)
Quarter: 2007Q4

REPORT INFORMATION
  Report Type: 
  Country: None (occurrence: None)
  Receive Date: 20071009
  Receipt Date: 20070928
  Transmission Date: 20080405
  Serious: Yes (Hospitalization, Other)
  Sender: FDA-Public Use
  Company Number: 121861USA

PATIENT
  Age: 40 Year
  Sex: Female
  Weight: 127.0072 kg

DRUGS (8)
  1. COPAXONE [Suspect]
     Indication: MULTIPLE SCLEROSIS
     Dosage: 20 MG/ML, ONCE A DAY, SUBCUTANEOUS
     Route: 058
     Dates: start: 19980701
  2. AMANTADINE HCL [Concomitant]
  3. FEXOFENADINE HYDROCHLORIDE [Concomitant]
  4. MULTI-VITAMIN [Concomitant]
  5. VITAMIN B COMPLEX CAP [Concomitant]
  6. VITAMIN B6 [Concomitant]
  7. ASCORBI ACID [Concomitant]
  8. TOCOPHEROL CONCENTRATE CAP [Concomitant]

REACTIONS (2)
  - BREAST CANCER METASTATIC [None]
  - METASTASES TO BONE [None]
